FAERS Safety Report 9304112 (Version 1)
Quarter: 2013Q2

REPORT INFORMATION
  Report Type: Spontaneous
  Country: NL (occurrence: NL)
  Receive Date: 20130522
  Receipt Date: 20130522
  Transmission Date: 20140414
  Serious: Yes (Other)
  Sender: FDA-Public Use
  Company Number: NL-PFIZER INC-2013151993

PATIENT
  Sex: Male

DRUGS (3)
  1. ATORVASTATIN CALCIUM [Suspect]
     Dosage: 10 MG, UNK
  2. PRAVASTATIN SODIUM [Suspect]
     Dosage: 20 MG, UNK
  3. CRESTOR [Suspect]
     Dosage: 5 MG, UNK

REACTIONS (8)
  - Surgery [Unknown]
  - Muscle spasms [Unknown]
  - Abdominal pain [Unknown]
  - Nausea [Unknown]
  - Fatigue [Unknown]
  - Asthenia [Unknown]
  - Blood cholesterol increased [Unknown]
  - Quality of life decreased [Unknown]
